FAERS Safety Report 9868741 (Version 2)
Quarter: 2014Q1

REPORT INFORMATION
  Report Type: Spontaneous
  Country: US (occurrence: US)
  Receive Date: 20140204
  Receipt Date: 20140304
  Transmission Date: 20141002
  Serious: No
  Sender: FDA-Public Use
  Company Number: US-009507513-1402USA001468

PATIENT
  Age: 82 Year
  Sex: Female
  Weight: 77.98 kg

DRUGS (5)
  1. OXYTROL FOR WOMEN [Suspect]
     Indication: URINARY INCONTINENCE
     Dosage: 1 DF, BIW
     Route: 062
     Dates: start: 201310, end: 201312
  2. BYSTOLIC [Concomitant]
     Indication: HYPERTENSION
     Dosage: 20 MG, UNKNOWN
  3. OMEPRAZOLE [Concomitant]
     Indication: DYSPEPSIA
     Dosage: 20 MG, UNKNOWN
  4. ASPIRIN [Concomitant]
     Indication: PRODUCT USED FOR UNKNOWN INDICATION
     Dosage: 81 MG, UNKNOWN
  5. MYRBETRIQ [Concomitant]
     Indication: URINARY INCONTINENCE
     Dosage: 50 MG, UNKNOWN

REACTIONS (5)
  - Dermatitis contact [Recovered/Resolved]
  - Dry mouth [Recovered/Resolved]
  - Rash [Recovered/Resolved]
  - Pruritus [Recovered/Resolved]
  - Application site erythema [Recovering/Resolving]
